FAERS Safety Report 11885514 (Version 1)
Quarter: 2016Q1

REPORT INFORMATION
  Report Type: Other
  Country: IT (occurrence: IT)
  Receive Date: 20160104
  Receipt Date: 20160104
  Transmission Date: 20160526
  Serious: Yes (Other)
  Sender: FDA-Public Use
  Company Number: IT-MYLANLABS-2015M1047425

PATIENT

DRUGS (2)
  1. QUETIAPINE [Suspect]
     Active Substance: QUETIAPINE
     Indication: BIPOLAR DISORDER
     Dosage: 200 MG, QD
     Route: 048
     Dates: start: 20150801
  2. PREGABALIN MYLAN [Suspect]
     Active Substance: PREGABALIN
     Indication: BIPOLAR DISORDER
     Dosage: 225 MG DAILY
     Route: 048
     Dates: start: 20150801

REACTIONS (2)
  - Bipolar disorder [Unknown]
  - No therapeutic response [Not Recovered/Not Resolved]

NARRATIVE: CASE EVENT DATE: 20150930
